FAERS Safety Report 4286792-3 (Version None)
Quarter: 2004Q1

REPORT INFORMATION
  Report Type: 
  Country: None (occurrence: None)
  Receive Date: 20040206
  Receipt Date: 20040129
  Transmission Date: 20041129
  Serious: Yes (Hospitalization)
  Sender: FDA-Public Use
  Company Number: FR-ROCHE-357759

PATIENT
  Age: 70 Year
  Sex: Female

DRUGS (8)
  1. CAPECITABINE [Suspect]
     Indication: BREAST CANCER
     Route: 048
     Dates: start: 20031204, end: 20040103
  2. IXABEPILONE [Suspect]
     Indication: BREAST CANCER
     Dosage: CYCLE 1
     Route: 042
     Dates: start: 20031204
  3. IXABEPILONE [Suspect]
     Dosage: CYCLE 2
     Route: 042
     Dates: end: 20031231
  4. TRIMETHOPRIM-SULFAMETHOXAZOLE [Concomitant]
     Dates: start: 20031125, end: 20031214
  5. SPIRONOLACTONE [Concomitant]
     Dates: start: 20031117
  6. STILNOX [Concomitant]
     Dates: start: 20030121
  7. LEXOMIL [Concomitant]
     Dates: start: 20030120
  8. LOXEN [Concomitant]
     Dates: start: 20030817

REACTIONS (5)
  - ASTHENIA [None]
  - LEUKOPENIA [None]
  - MUCOSAL INFLAMMATION [None]
  - NEUTROPENIA [None]
  - THROMBOCYTOPENIA [None]
